FAERS Safety Report 11966138 (Version 6)
Quarter: 2016Q3

REPORT INFORMATION
  Report Type: Spontaneous
  Country: US (occurrence: US)
  Receive Date: 20160127
  Receipt Date: 20160726
  Transmission Date: 20161109
  Serious: Yes (Other)
  Sender: FDA-Public Use
  Company Number: US-PFIZER INC-2015356428

PATIENT
  Age: 72 Year
  Sex: Female

DRUGS (26)
  1. TRIAMCINOLONE ACETONIDE. [Concomitant]
     Active Substance: TRIAMCINOLONE ACETONIDE
     Dosage: UNK, 2X/DAY (0.1 % CREAM 1 APPLICATION)
     Route: 061
     Dates: start: 20150915
  2. ALBUTEROL. [Concomitant]
     Active Substance: ALBUTEROL
     Dosage: AS NEEDED (90 MCG/ACTUATION)
  3. AZITHROMYCIN ANHYDROUS. [Concomitant]
     Active Substance: AZITHROMYCIN ANHYDROUS
     Dosage: 250 MG, AS NEEDED (DAILY)
     Route: 048
  4. IBRANCE [Suspect]
     Active Substance: PALBOCICLIB
     Dosage: 75 MG, CYCLIC (21/28 DAYS)
     Route: 048
     Dates: start: 20151111
  5. ALBUTEROL SULFATE. [Concomitant]
     Active Substance: ALBUTEROL SULFATE
     Dosage: 5 MG/ML, AS NEEDED
  6. ZOFRAN [Concomitant]
     Active Substance: ONDANSETRON HYDROCHLORIDE
     Dosage: 16 MG, (ONCE)
     Route: 048
     Dates: start: 20150915
  7. ATIVAN [Concomitant]
     Active Substance: LORAZEPAM
     Dosage: 0.5 MG, (ONCE)
     Route: 048
     Dates: start: 20150915
  8. IBRANCE [Suspect]
     Active Substance: PALBOCICLIB
     Indication: BREAST CANCER METASTATIC
     Dosage: 125 MG ONCE DAILY FOR 21 DAYS, FOLLOWED BY A 7-DAY REST PERIOD TO COMPLETE A 28-DAY TREATMENT CYCLE
     Route: 048
     Dates: start: 20151111
  9. ADVAIR DISKUS [Concomitant]
     Active Substance: FLUTICASONE PROPIONATE\SALMETEROL XINAFOATE
     Indication: ASTHMA
     Dosage: AS NEEDED (250-50 MCG/DOSE BLISTER)
  10. IBRANCE [Suspect]
     Active Substance: PALBOCICLIB
     Dosage: 75 MG ONCE DAILY CYCLIC (FOR 21 DAYS, FOLLOWED BY A 7-DAY REST PERIOD TO COMPLETE A 28-DAY CYCLE)
     Route: 048
     Dates: start: 20160511
  11. PRILOSEC [Concomitant]
     Active Substance: OMEPRAZOLE MAGNESIUM
     Dosage: 20 MG, DAILY
     Route: 048
  12. DECADRON [Concomitant]
     Active Substance: DEXAMETHASONE
     Dosage: 12 MG, (ONCE)
     Route: 048
     Dates: start: 20150915
  13. CYCLOPHOSPHAMIDE. [Concomitant]
     Active Substance: CYCLOPHOSPHAMIDE
     Dosage: 1060 MG, (ONCE)
     Route: 042
     Dates: start: 20150915
  14. ADRIAMYCIN [Concomitant]
     Active Substance: DOXORUBICIN HYDROCHLORIDE
     Dosage: 100 MG, (ONCE)
     Route: 042
     Dates: start: 20150915
  15. EMEND [Concomitant]
     Active Substance: APREPITANT
     Dosage: 150 MG, (ONCE)
     Route: 042
     Dates: start: 20150915
  16. NORMAL SALINE [Concomitant]
     Active Substance: SODIUM CHLORIDE
     Dosage: 250 ML, (ONCE)
     Route: 042
     Dates: start: 20150915
  17. ZOMETA [Concomitant]
     Active Substance: ZOLEDRONIC ACID
     Dosage: 4 MG, (ONCE)
     Route: 042
     Dates: start: 20150915
  18. OMEPRAZOLE. [Concomitant]
     Active Substance: OMEPRAZOLE
  19. FEMARA [Suspect]
     Active Substance: LETROZOLE
     Indication: BREAST CANCER METASTATIC
     Dosage: 2.5 MG, 1X/DAY
     Route: 048
     Dates: start: 20150915
  20. AMITRIPTYLINE [Concomitant]
     Active Substance: AMITRIPTYLINE
     Dosage: 25 MG, AS NEEDED (DAILY)
     Route: 048
  21. CALCIUM CITRATE [Concomitant]
     Active Substance: CALCIUM CITRATE
     Dosage: 1000 MG, DAILY
     Route: 048
  22. LETROZOLE. [Concomitant]
     Active Substance: LETROZOLE
  23. IBRANCE [Suspect]
     Active Substance: PALBOCICLIB
     Dosage: 100 MG ONCE DAILY CYCLIC
  24. FEMARA [Suspect]
     Active Substance: LETROZOLE
     Dosage: UNK
     Route: 048
     Dates: start: 201510
  25. PREDNISONE. [Concomitant]
     Active Substance: PREDNISONE
     Dosage: 20 MG, AS NEEDED (DAILLY)
     Route: 048
  26. VITAMIN D3 [Concomitant]
     Active Substance: CHOLECALCIFEROL
     Dosage: 1 DF, DAILY (2000 UNIT CAPSULE)
     Route: 048

REACTIONS (5)
  - Neutropenia [Recovered/Resolved]
  - Arthralgia [Unknown]
  - Bone pain [Unknown]
  - White blood cell count decreased [Unknown]
  - Fatigue [Unknown]

NARRATIVE: CASE EVENT DATE: 20160104
